FAERS Safety Report 5565395-4 (Version None)
Quarter: 2007Q4

REPORT INFORMATION
  Report Type: 
  Country: None (occurrence: None)
  Receive Date: 20071218
  Receipt Date: 20050623
  Transmission Date: 20080405
  Serious: Yes (Death, Other)
  Sender: FDA-Public Use
  Company Number: GB-ROCHE-403287

PATIENT
  Age: 72 Year
  Sex: Female

DRUGS (3)
  1. CYMEVENE [Suspect]
     Route: 042
     Dates: start: 20050419
  2. CYMEVENE [Suspect]
     Route: 042
     Dates: end: 20050426
  3. SEPTRIN [Suspect]
     Route: 042
     Dates: start: 20050405, end: 20050418

REACTIONS (2)
  - DEAFNESS [None]
  - DEATH [None]
